FAERS Safety Report 21590416 (Version 1)
Quarter: 2022Q4

REPORT INFORMATION
  Report Type: Spontaneous
  Country: US (occurrence: None)
  Receive Date: 20221111
  Receipt Date: 20221111
  Transmission Date: 20230112
  Serious: Yes (Other)
  Sender: FDA-Public Use
  Company Number: None

PATIENT
  Age: 69 Year
  Sex: Female
  Weight: 79.8 kg

DRUGS (2)
  1. INJECTAFER [Suspect]
     Active Substance: FERRIC CARBOXYMALTOSE
     Indication: Thrombocytopenia
     Dosage: OTHER FREQUENCY : DAY 1/DAY 8;?
  2. INJECTAFER [Concomitant]
     Active Substance: FERRIC CARBOXYMALTOSE
     Dates: start: 20221103, end: 20221110

REACTIONS (3)
  - Sneezing [None]
  - Nausea [None]
  - Infusion related reaction [None]

NARRATIVE: CASE EVENT DATE: 20221110
